FAERS Safety Report 9898083 (Version 1)
Quarter: 2014Q1

REPORT INFORMATION
  Report Type: Spontaneous
  Country: BR (occurrence: BR)
  Receive Date: 20140214
  Receipt Date: 20140214
  Transmission Date: 20141002
  Serious: Yes (Hospitalization, Other)
  Sender: FDA-Public Use
  Company Number: BR-009507513-1402BRA005209

PATIENT
  Age: 43 Year
  Sex: Female
  Weight: 88 kg

DRUGS (2)
  1. JANUMET [Suspect]
     Indication: TYPE 2 DIABETES MELLITUS
     Dosage: 50/500 MG, QM
     Route: 048
     Dates: end: 201401
  2. VALSARTAN (ANGIO) [Concomitant]
     Indication: HYPERTENSION
     Dosage: 160 MG, BID
     Route: 048
     Dates: start: 201312

REACTIONS (4)
  - Cholecystectomy [Unknown]
  - Obesity surgery [Unknown]
  - Cholelithiasis [Recovered/Resolved]
  - Blood glucose abnormal [Unknown]
